FAERS Safety Report 22638338 (Version 1)
Quarter: 2023Q2

REPORT INFORMATION
  Report Type: Spontaneous
  Country: US (occurrence: None)
  Receive Date: 20230623
  Receipt Date: 20230623
  Transmission Date: 20230722
  Serious: Yes (Hospitalization, Other)
  Sender: FDA-Public Use
  Company Number: None

PATIENT
  Age: 23 Year
  Sex: Female
  Weight: 47.3 kg

DRUGS (4)
  1. MIFEPRISTONE [Suspect]
     Active Substance: MIFEPRISTONE
     Indication: Abortion induced
     Dosage: OTHER FREQUENCY : ONCE;?
     Dates: start: 20230621, end: 20230621
  2. MISOPROSTOL [Suspect]
     Active Substance: MISOPROSTOL
     Indication: Abortion induced
     Route: 067
     Dates: start: 20230622, end: 20230622
  3. FERROUS SULFATE 325 MG BID [Concomitant]
  4. VYVANSE 60 MG DAILY [Concomitant]

REACTIONS (8)
  - Nausea [None]
  - Vomiting [None]
  - Vaginal haemorrhage [None]
  - Syncope [None]
  - Blood pressure decreased [None]
  - Dizziness [None]
  - Asthenia [None]
  - Abortion incomplete [None]

NARRATIVE: CASE EVENT DATE: 20230623
